FAERS Safety Report 18286250 (Version 2)
Quarter: 2020Q3

REPORT INFORMATION
  Report Type: Spontaneous
  Country: US (occurrence: US)
  Receive Date: 20200920
  Receipt Date: 20200922
  Transmission Date: 20201103
  Serious: Yes (Other)
  Sender: FDA-Public Use
  Company Number: US-SA-2020SA246654

PATIENT

DRUGS (1)
  1. TOUJEO [Suspect]
     Active Substance: INSULIN GLARGINE
     Indication: TYPE 2 DIABETES MELLITUS
     Dosage: 35 IU, QD
     Route: 065

REACTIONS (10)
  - Diabetes mellitus [Unknown]
  - Blood glucose fluctuation [Unknown]
  - Device operational issue [Unknown]
  - Glycosylated haemoglobin increased [Unknown]
  - Headache [Unknown]
  - Stress [Unknown]
  - Blood glucose increased [Unknown]
  - Product dose omission issue [Unknown]
  - Tremor [Unknown]
  - Nausea [Unknown]

NARRATIVE: CASE EVENT DATE: 202009
